FAERS Safety Report 25529901 (Version 2)
Quarter: 2025Q4

REPORT INFORMATION
  Report Type: Other
  Country: CA (occurrence: CA)
  Receive Date: 20250708
  Receipt Date: 20251031
  Transmission Date: 20260119
  Serious: Yes (Other)
  Sender: APOTEX
  Company Number: CA-PGRTD-001134263

PATIENT

DRUGS (1)
  1. OLANZAPINE [Suspect]
     Active Substance: OLANZAPINE
     Indication: Product used for unknown indication
     Dosage: UNK
     Route: 065

REACTIONS (9)
  - Diabetes mellitus [Unknown]
  - Cortisol increased [Unknown]
  - Feeling abnormal [Unknown]
  - Dehydration [Unknown]
  - Blood glucose increased [Unknown]
  - Blood prolactin increased [Unknown]
  - Constipation [Unknown]
  - White blood cell count decreased [Unknown]
  - Weight increased [Unknown]
